FAERS Safety Report 16479141 (Version 1)
Quarter: 2019Q2

REPORT INFORMATION
  Report Type: Spontaneous
  Country: US (occurrence: US)
  Receive Date: 20190626
  Receipt Date: 20190626
  Transmission Date: 20190711
  Serious: Yes (Hospitalization, Other)
  Sender: FDA-Public Use
  Company Number: US-SAOL THERAPEUTICS-2018SAO01069

PATIENT
  Age: 22 Year
  Sex: Male
  Weight: 53.97 kg

DRUGS (9)
  1. LIORESAL [Suspect]
     Active Substance: BACLOFEN
     Dosage: 652 ?G, \DAY
     Route: 037
     Dates: end: 20181101
  2. PROBIOTIC [Concomitant]
     Active Substance: PROBIOTICS NOS
  3. MVI [Concomitant]
     Active Substance: VITAMINS
  4. LIORESAL [Suspect]
     Active Substance: BACLOFEN
     Dosage: 250 ?G, \DAY
     Route: 037
     Dates: start: 20181101
  5. GABLOFEN [Suspect]
     Active Substance: BACLOFEN
     Dosage: 652 ?G, \DAY
     Route: 037
     Dates: end: 20181101
  6. GABLOFEN [Suspect]
     Active Substance: BACLOFEN
     Dosage: 250 ?G, \DAY
     Dates: start: 20181101
  7. GABLOFEN [Suspect]
     Active Substance: BACLOFEN
     Dosage: UNK
     Dates: start: 20181101
  8. LAMICTAL [Concomitant]
     Active Substance: LAMOTRIGINE
     Dosage: 100 MG, 3X/DAY
  9. MIRALAX [Concomitant]
     Active Substance: POLYETHYLENE GLYCOL 3350
     Dosage: 17 G, 1X/DAY

REACTIONS (5)
  - Therapeutic response changed [Unknown]
  - Device infusion issue [Recovered/Resolved]
  - Muscle spasms [Recovered/Resolved]
  - Clonus [Recovered/Resolved]
  - Complication associated with device [Recovered/Resolved]

NARRATIVE: CASE EVENT DATE: 2018
